FAERS Safety Report 8342376-9 (Version None)
Quarter: 2012Q2

REPORT INFORMATION
  Report Type: 
  Country: None (occurrence: None)
  Receive Date: 20120508
  Receipt Date: 20120430
  Transmission Date: 20120825
  Serious: Yes (Hospitalization)
  Sender: FDA-Public Use
  Company Number: US-BIOGENIDEC-2012BI014928

PATIENT
  Age: 56 Year
  Sex: Female
  Weight: 82 kg

DRUGS (10)
  1. ALBUTEROL [Concomitant]
  2. IPRATROPIUM BROMIDE [Concomitant]
  3. ADVAIR DISKUS 100/50 [Concomitant]
  4. TYSABRI [Suspect]
     Indication: MULTIPLE SCLEROSIS
     Route: 042
     Dates: start: 20081114
  5. OXYGEN [Concomitant]
     Route: 045
  6. COMBIVENT [Concomitant]
  7. PROZAC [Concomitant]
  8. WELLBUTRIN [Concomitant]
  9. PROAIR HFA [Concomitant]
  10. SPIRIVA [Concomitant]

REACTIONS (3)
  - CHRONIC OBSTRUCTIVE PULMONARY DISEASE [None]
  - PNEUMONIA [None]
  - ACUTE RESPIRATORY FAILURE [None]
